FAERS Safety Report 21789765 (Version 1)
Quarter: 2022Q4

REPORT INFORMATION
  Report Type: Report from Study
  Country: CA (occurrence: CA)
  Receive Date: 20221228
  Receipt Date: 20221228
  Transmission Date: 20230113
  Serious: Yes (Death)
  Sender: FDA-Public Use
  Company Number: CA-OTSUKA-2022_022688

PATIENT
  Age: 65 Year
  Sex: Male

DRUGS (1)
  1. CEDAZURIDINE\DECITABINE [Suspect]
     Active Substance: CEDAZURIDINE\DECITABINE
     Indication: Myelodysplastic syndrome
     Dosage: 1 DF, QD (1 TAB 5 DAYS OF 28 DAYS)
     Route: 048
     Dates: start: 20220106, end: 20221206

REACTIONS (3)
  - Aortic aneurysm rupture [Fatal]
  - Eastern Cooperative Oncology Group performance status worsened [Unknown]
  - General physical health deterioration [Not Recovered/Not Resolved]

NARRATIVE: CASE EVENT DATE: 20220201
